FAERS Safety Report 7674230-X (Version None)
Quarter: 2011Q3

REPORT INFORMATION
  Report Type: 
  Country: None (occurrence: None)
  Receive Date: 20110810
  Receipt Date: 20110727
  Transmission Date: 20111222
  Serious: Yes (Hospitalization, Other)
  Sender: FDA-Public Use
  Company Number: GB-ELI_LILLY_AND_COMPANY-GB201107007965

PATIENT
  Sex: Female

DRUGS (2)
  1. HUMULIN N [Suspect]
     Dosage: 110 U, BID
  2. HUMALOG [Suspect]
     Dosage: 110 U, TID

REACTIONS (2)
  - BLOOD GLUCOSE INCREASED [None]
  - PITUITARY-DEPENDENT CUSHING'S SYNDROME [None]
